FAERS Safety Report 9243039 (Version 1)
Quarter: 2013Q2

REPORT INFORMATION
  Report Type: Spontaneous
  Country: US (occurrence: US)
  Receive Date: 20130419
  Receipt Date: 20130419
  Transmission Date: 20140414
  Serious: Yes (Other)
  Sender: FDA-Public Use
  Company Number: CHPA2013US006666

PATIENT
  Age: 77 Year
  Sex: Female

DRUGS (4)
  1. GAS-X UNKNOWN [Suspect]
     Indication: DYSPEPSIA
     Dosage: UNK, UNK
     Route: 048
  2. NEXIUM//ESOMEPRAZOLE SODIUM [Concomitant]
     Indication: GASTROOESOPHAGEAL REFLUX DISEASE
  3. MYLANTA                                 /USA/ [Concomitant]
     Indication: DYSPEPSIA
  4. MAALOX ANTACID WITH ANTI-GAS [Concomitant]
     Indication: DYSPEPSIA

REACTIONS (2)
  - Mental impairment [Not Recovered/Not Resolved]
  - Drug ineffective [Unknown]
